FAERS Safety Report 9645282 (Version 1)
Quarter: 2013Q4

REPORT INFORMATION
  Report Type: Spontaneous
  Country: US (occurrence: None)
  Receive Date: 20131023
  Receipt Date: 20131023
  Transmission Date: 20140711
  Serious: No
  Sender: FDA-Public Use
  Company Number: None

PATIENT
  Age: 69 Year
  Sex: Female
  Weight: 65.77 kg

DRUGS (8)
  1. PRAVASTATIN SODIUM [Suspect]
     Indication: BLOOD CHOLESTEROL INCREASED
     Dosage: 1 PILL
     Route: 048
     Dates: start: 20130207, end: 20130210
  2. PRAVASTATIN SODIUM [Suspect]
     Indication: BLOOD CHOLESTEROL INCREASED
     Route: 048
     Dates: start: 20130207, end: 20130210
  3. LEVOTHYROXINE [Concomitant]
  4. LOSARTAN [Concomitant]
  5. PROVASTATIN [Concomitant]
  6. CO-ENZYME Q10 [Concomitant]
  7. MAGNESIUM [Concomitant]
  8. VITAMIN D [Concomitant]

REACTIONS (3)
  - Dry mouth [None]
  - Aptyalism [None]
  - Product quality issue [None]
